FAERS Safety Report 7540295-9 (Version None)
Quarter: 2011Q2

REPORT INFORMATION
  Report Type: 
  Country: None (occurrence: None)
  Receive Date: 20110610
  Receipt Date: 20110603
  Transmission Date: 20111010
  Serious: Yes (Hospitalization)
  Sender: FDA-Public Use
  Company Number: PHHO2011US09946

PATIENT
  Sex: Male
  Weight: 91.565 kg

DRUGS (5)
  1. AFINITOR [Suspect]
     Indication: COLORECTAL CANCER METASTATIC
     Dosage: 10 MG, UNK
     Route: 048
     Dates: start: 20110405
  2. NORVASC [Concomitant]
  3. LISINOPRIL [Concomitant]
  4. OXYCODONE HCL [Concomitant]
  5. TIVOZANIB [Suspect]
     Indication: COLORECTAL CANCER METASTATIC
     Dosage: 1 MG, UNK
     Dates: start: 20110405

REACTIONS (2)
  - BACK PAIN [None]
  - SMALL INTESTINAL OBSTRUCTION [None]
